FAERS Safety Report 13924692 (Version 1)
Quarter: 2017Q3

REPORT INFORMATION
  Report Type: Spontaneous
  Country: FR (occurrence: FR)
  Receive Date: 20170831
  Receipt Date: 20170831
  Transmission Date: 20171127
  Serious: Yes (Other)
  Sender: FDA-Public Use
  Company Number: FR-TEVA-794948ROM

PATIENT
  Sex: Female

DRUGS (1)
  1. COPAXONE [Suspect]
     Active Substance: GLATIRAMER ACETATE
     Indication: MULTIPLE SCLEROSIS
     Dosage: COPAXONE: 40 MG/ML. LAST INJECTION BEFORE ADVERSE EVENT (THIRTEENTH INJECTION) DATED 10-JUL-2017
     Route: 058
     Dates: start: 20170611

REACTIONS (3)
  - Injection site induration [Unknown]
  - Rash [Not Recovered/Not Resolved]
  - Injection site plaque [Unknown]

NARRATIVE: CASE EVENT DATE: 20170710
